FAERS Safety Report 13666946 (Version 1)
Quarter: 2017Q2

REPORT INFORMATION
  Report Type: Spontaneous
  Country: US (occurrence: US)
  Receive Date: 20170619
  Receipt Date: 20170619
  Transmission Date: 20170830
  Serious: No
  Sender: FDA-Public Use
  Company Number: US-ROCHE-1260545

PATIENT
  Sex: Female

DRUGS (3)
  1. XELODA [Suspect]
     Active Substance: CAPECITABINE
     Indication: BREAST CANCER METASTATIC
     Route: 048
  2. CELEXA [Concomitant]
     Active Substance: CITALOPRAM HYDROBROMIDE
  3. XELODA [Suspect]
     Active Substance: CAPECITABINE
     Indication: METASTASES TO BONE

REACTIONS (13)
  - Muscle twitching [Unknown]
  - Visual impairment [Unknown]
  - Alopecia [Unknown]
  - Myalgia [Unknown]
  - Nail discolouration [Recovering/Resolving]
  - Muscle disorder [Unknown]
  - Headache [Unknown]
  - Insomnia [Unknown]
  - Dry skin [Unknown]
  - Onychoclasis [Recovering/Resolving]
  - Dehydration [Unknown]
  - Feeling hot [Unknown]
  - Pain in extremity [Unknown]
